FAERS Safety Report 10911515 (Version 1)
Quarter: 2015Q1

REPORT INFORMATION
  Report Type: Spontaneous
  Country: US (occurrence: US)
  Receive Date: 20150313
  Receipt Date: 20150313
  Transmission Date: 20150721
  Serious: Yes (Other)
  Sender: FDA-Public Use
  Company Number: US-BEH-2015049475

PATIENT
  Sex: Male
  Weight: 81 kg

DRUGS (24)
  1. PRIVIGEN [Suspect]
     Active Substance: HUMAN IMMUNOGLOBULIN G
     Route: 042
  2. PRIVIGEN [Suspect]
     Active Substance: HUMAN IMMUNOGLOBULIN G
     Indication: CHRONIC INFLAMMATORY DEMYELINATING POLYRADICULONEUROPATHY
     Dosage: AS DIRECTED
     Route: 042
  3. LASIX [Concomitant]
     Active Substance: FUROSEMIDE
  4. COREG [Concomitant]
     Active Substance: CARVEDILOL
  5. ZOLPIDEM [Concomitant]
     Active Substance: ZOLPIDEM\ZOLPIDEM TARTRATE
  6. B12 INJECTION [Concomitant]
  7. VENTOLIN [Concomitant]
     Active Substance: ALBUTEROL SULFATE
  8. LANTUS [Concomitant]
     Active Substance: INSULIN GLARGINE
  9. CHLORPHENIRAMINE [Concomitant]
     Active Substance: CHLORPHENIRAMINE
  10. SODIUM CHLORIDE. [Concomitant]
     Active Substance: SODIUM CHLORIDE
  11. ALDACTONE [Concomitant]
     Active Substance: SPIRONOLACTONE
  12. HEPARIN [Concomitant]
     Active Substance: HEPARIN SODIUM
  13. LMX [Concomitant]
     Active Substance: LIDOCAINE
  14. LOSARTAN [Concomitant]
     Active Substance: LOSARTAN
  15. DALIRESP [Concomitant]
     Active Substance: ROFLUMILAST
  16. DIPHENHYDRAMINE [Concomitant]
     Active Substance: DIPHENHYDRAMINE
  17. EPIPEN [Concomitant]
     Active Substance: EPINEPHRINE
  18. AMIODARONE [Concomitant]
     Active Substance: AMIODARONE
  19. ASPIRIN. [Concomitant]
     Active Substance: ASPIRIN
  20. NEUPRO [Concomitant]
     Active Substance: ROTIGOTINE
  21. BREO ELLIPTA [Concomitant]
     Active Substance: FLUTICASONE FUROATE\VILANTEROL TRIFENATATE
  22. WARFARIN [Concomitant]
     Active Substance: WARFARIN
  23. NOVOLOG [Concomitant]
     Active Substance: INSULIN ASPART
  24. ACETAMINOPHEN. [Concomitant]
     Active Substance: ACETAMINOPHEN

REACTIONS (2)
  - Bronchitis [Unknown]
  - Lower respiratory tract infection [Unknown]
